FAERS Safety Report 8507724-5 (Version None)
Quarter: 2012Q3

REPORT INFORMATION
  Report Type: 
  Country: None (occurrence: None)
  Receive Date: 20120709
  Receipt Date: 20120709
  Transmission Date: 20120928
  Serious: No
  Sender: FDA-Public Use
  Company Number: None

PATIENT

DRUGS (5)
  1. TRUVADA [Suspect]
  2. GANCICLOVIR [Suspect]
  3. TENOFOVIR [Suspect]
  4. VANCOMYCIN [Concomitant]
  5. IOHEXAGITA (IOHEXOL) [Concomitant]

REACTIONS (6)
  - NEPHROPATHY TOXIC [None]
  - RENAL FAILURE ACUTE [None]
  - FLUSHING [None]
  - LETHARGY [None]
  - CONDITION AGGRAVATED [None]
  - HYPONATRAEMIA [None]
